FAERS Safety Report 19931497 (Version 2)
Quarter: 2021Q4

REPORT INFORMATION
  Report Type: Report from Study
  Country: None (occurrence: KW)
  Receive Date: 20211008
  Receipt Date: 20211016
  Transmission Date: 20220303
  Serious: Yes (Other)
  Sender: FDA-Public Use
  Company Number: KW-ABBVIE-21K-091-4111147-00

PATIENT
  Age: 70 Year
  Sex: Male

DRUGS (4)
  1. VENETOCLAX [Suspect]
     Active Substance: VENETOCLAX
     Indication: Acute myeloid leukaemia
     Route: 048
     Dates: start: 202104
  2. AZACITIDINE [Suspect]
     Active Substance: AZACITIDINE
     Indication: Acute myeloid leukaemia
     Route: 065
     Dates: start: 202104
  3. FILGRASTIM [Concomitant]
     Active Substance: FILGRASTIM
     Indication: Neutropenia
     Dates: start: 202105, end: 202105
  4. POSACONAZOLE [Concomitant]
     Active Substance: POSACONAZOLE
     Indication: Fungal infection
     Dates: start: 202103, end: 202104

REACTIONS (2)
  - Fungal infection [Recovered/Resolved]
  - Neutropenia [Unknown]

NARRATIVE: CASE EVENT DATE: 20210101
